FAERS Safety Report 25351481 (Version 1)
Quarter: 2025Q2

REPORT INFORMATION
  Report Type: Spontaneous
  Country: US (occurrence: US)
  Receive Date: 20250523
  Receipt Date: 20250523
  Transmission Date: 20250716
  Serious: No
  Sender: ELI LILLY AND COMPANY
  Company Number: US-ELI_LILLY_AND_COMPANY-US202505017140

PATIENT
  Age: 46 Year
  Sex: Male
  Weight: 74.83 kg

DRUGS (2)
  1. HUMALOG [Suspect]
     Active Substance: INSULIN LISPRO
     Indication: Product used for unknown indication
     Route: 065
  2. TANDEM [FERROUS ASPARTO GLYCINATE;FERROUS FUM [Concomitant]
     Indication: Product used for unknown indication

REACTIONS (5)
  - Blood glucose increased [Recovered/Resolved]
  - Illness [Unknown]
  - Dizziness [Unknown]
  - Vomiting [Unknown]
  - Blood glucose decreased [Recovered/Resolved]

NARRATIVE: CASE EVENT DATE: 20250516
